FAERS Safety Report 9774988 (Version 1)
Quarter: 2013Q4

REPORT INFORMATION
  Report Type: Spontaneous
  Country: US (occurrence: US)
  Receive Date: 20131220
  Receipt Date: 20131220
  Transmission Date: 20140711
  Serious: No
  Sender: FDA-Public Use
  Company Number: US-GLAXOSMITHKLINE-A1029256A

PATIENT
  Age: 75 Year
  Sex: Male

DRUGS (4)
  1. AVODART [Suspect]
     Indication: BENIGN PROSTATIC HYPERPLASIA
     Dosage: .5MG PER DAY
     Route: 048
     Dates: start: 201210, end: 20130624
  2. ASPIRIN [Concomitant]
  3. LISINOPRIL [Concomitant]
  4. TAMSULOSIN [Concomitant]

REACTIONS (4)
  - Rash [Recovering/Resolving]
  - Skin ulcer [Recovering/Resolving]
  - Pruritus [Unknown]
  - Urticaria [Recovering/Resolving]
